FAERS Safety Report 24314964 (Version 1)
Quarter: 2024Q3

REPORT INFORMATION
  Report Type: Spontaneous
  Country: PL (occurrence: PL)
  Receive Date: 20240913
  Receipt Date: 20240913
  Transmission Date: 20241017
  Serious: Yes (Other)
  Sender: MERCK
  Company Number: PL-PFIZER INC-PV202400109764

PATIENT
  Age: 68 Year
  Sex: Male

DRUGS (3)
  1. PEMBROLIZUMAB [Suspect]
     Active Substance: PEMBROLIZUMAB
     Indication: Non-small cell lung cancer
     Dosage: 200 MG, EVERY 3 WEEKS
     Route: 042
     Dates: start: 20230712
  2. CARBOPLATIN [Suspect]
     Active Substance: CARBOPLATIN
     Indication: Non-small cell lung cancer
     Dosage: (DOSE CALCULATED ACCORDING TO AREA UNDER OF CURVE (AUC)) AND AMOUNTING TO 5 MG/MIN/M2 EVERY 21 DAYS
     Dates: start: 20230712
  3. PACLITAXEL [Suspect]
     Active Substance: PACLITAXEL
     Indication: Non-small cell lung cancer
     Dosage: 200 MG/M2, EVERY 3 WEEKS; 4 COURSES
     Dates: start: 20230712

REACTIONS (4)
  - Peripheral sensory neuropathy [Unknown]
  - Nausea [Recovered/Resolved]
  - Cough [Unknown]
  - Dyspnoea exertional [Unknown]
